FAERS Safety Report 10878455 (Version 1)
Quarter: 2015Q1

REPORT INFORMATION
  Report Type: Spontaneous
  Country: CA (occurrence: None)
  Receive Date: 20150224
  Receipt Date: 20150224
  Transmission Date: 20150721
  Serious: Yes (Hospitalization)
  Sender: FDA-Public Use
  Company Number: 2749362

PATIENT
  Age: 06 Year
  Sex: Male
  Weight: 22 kg

DRUGS (4)
  1. VANCOMYCIN [Concomitant]
     Active Substance: VANCOMYCIN
  2. ERYTHROMYCIN. [Concomitant]
     Active Substance: ERYTHROMYCIN
  3. OSELTAMIVIR [Concomitant]
     Active Substance: OSELTAMIVIR
  4. CEFTRIAXONE SODIUM. [Suspect]
     Active Substance: CEFTRIAXONE SODIUM
     Indication: SEPSIS
     Dosage: 1000 MG MILLIGRAM(S), 1 HOUR
     Route: 042

REACTIONS (11)
  - Hepatitis [None]
  - Disseminated intravascular coagulation [None]
  - Acute respiratory distress syndrome [None]
  - Skin necrosis [None]
  - Demyelination [None]
  - Acute kidney injury [None]
  - Seizure [None]
  - Dialysis [None]
  - Extremity necrosis [None]
  - Autoimmune haemolytic anaemia [None]
  - Colitis ischaemic [None]
